FAERS Safety Report 10073314 (Version 2)
Quarter: 2014Q2

REPORT INFORMATION
  Report Type: Report from Study
  Country: US (occurrence: US)
  Receive Date: 20140411
  Receipt Date: 20140502
  Transmission Date: 20141212
  Serious: Yes (Death, Life-Threatening)
  Sender: FDA-Public Use
  Company Number: US-JNJFOC-20140406968

PATIENT
  Age: 66 Year
  Sex: Female

DRUGS (2)
  1. NUCYNTA ER [Suspect]
     Indication: PRODUCT USED FOR UNKNOWN INDICATION
     Route: 065
  2. LISINOPRIL [Suspect]
     Indication: PRODUCT USED FOR UNKNOWN INDICATION
     Route: 065

REACTIONS (17)
  - Death [Fatal]
  - Depressed level of consciousness [Unknown]
  - Loss of consciousness [Unknown]
  - Gastrointestinal haemorrhage [Unknown]
  - Sepsis [Unknown]
  - Overdose [Unknown]
  - Platelet count decreased [Unknown]
  - Disseminated intravascular coagulation [Unknown]
  - Blood pressure decreased [Unknown]
  - Intestinal obstruction [Unknown]
  - Blood glucose decreased [Unknown]
  - Somnolence [Unknown]
  - Restlessness [Unknown]
  - Confusional state [Unknown]
  - Agitation [Unknown]
  - Respiratory rate increased [Unknown]
  - Heart rate increased [Unknown]
